FAERS Safety Report 9531086 (Version 1)
Quarter: 2013Q3

REPORT INFORMATION
  Report Type: Spontaneous
  Country: US (occurrence: US)
  Receive Date: 20130918
  Receipt Date: 20130918
  Transmission Date: 20140515
  Serious: No
  Sender: FDA-Public Use
  Company Number: US-BAYER-2013-112474

PATIENT
  Age: 96 Year
  Sex: Female
  Weight: 63 kg

DRUGS (5)
  1. ALEVE TABLET [Suspect]
     Indication: ARTHRITIS
     Dosage: 2 DF, UNK
     Route: 048
  2. TOPROL [Concomitant]
  3. LASIX [Concomitant]
  4. ASPIRIN [Concomitant]
  5. DIGOXIN [Concomitant]

REACTIONS (3)
  - Nausea [Recovered/Resolved]
  - Malaise [None]
  - Abdominal pain upper [Not Recovered/Not Resolved]
